FAERS Safety Report 17314020 (Version 1)
Quarter: 2020Q1

REPORT INFORMATION
  Report Type: Spontaneous
  Country: US (occurrence: US)
  Receive Date: 20200123
  Receipt Date: 20200123
  Transmission Date: 20200409
  Serious: Yes (Death)
  Sender: FDA-Public Use
  Company Number: None

PATIENT
  Age: 70 Year
  Sex: Female

DRUGS (12)
  1. LEVOTHYROXIN [Concomitant]
     Active Substance: LEVOTHYROXINE
  2. GRANIX [Suspect]
     Active Substance: TBO-FILGRASTIM
     Indication: PANCREATIC CARCINOMA
     Dosage: ?          OTHER FREQUENCY:DAILY FOR 4 DAYS;?
     Route: 058
     Dates: start: 20191120, end: 20191227
  3. POLYETH GLYC POW [Concomitant]
  4. BENZONATATE. [Concomitant]
     Active Substance: BENZONATATE
  5. NYSTATIN. [Concomitant]
     Active Substance: NYSTATIN
  6. MORPHINE SUL [Concomitant]
     Active Substance: MORPHINE SULFATE
  7. CIPRO [Concomitant]
     Active Substance: CIPROFLOXACIN HYDROCHLORIDE
  8. MIRTAZAPINE. [Concomitant]
     Active Substance: MIRTAZAPINE
  9. ENOXAPARIN [Concomitant]
     Active Substance: ENOXAPARIN
  10. LEVOFLOXACIN. [Concomitant]
     Active Substance: LEVOFLOXACIN
  11. ONDANSETRON [Concomitant]
     Active Substance: ONDANSETRON
  12. DULOXETINE. [Concomitant]
     Active Substance: DULOXETINE

REACTIONS (1)
  - Death [None]

NARRATIVE: CASE EVENT DATE: 20191227
